FAERS Safety Report 7119368-0 (Version None)
Quarter: 2010Q4

REPORT INFORMATION
  Report Type: 
  Country: None (occurrence: None)
  Receive Date: 20101123
  Receipt Date: 20101116
  Transmission Date: 20110411
  Serious: Yes (Hospitalization, Other)
  Sender: FDA-Public Use
  Company Number: BR-US-EMD SERONO, INC.-7016215

PATIENT
  Sex: Female

DRUGS (8)
  1. REBIF [Suspect]
     Indication: RELAPSING-REMITTING MULTIPLE SCLEROSIS
     Route: 058
     Dates: start: 20040101, end: 20100801
  2. REBIF [Suspect]
     Route: 058
     Dates: start: 20100901
  3. ADALAT [Concomitant]
  4. CAPTOPRIL [Concomitant]
  5. CLORANA [Concomitant]
  6. FLUOXETINE [Concomitant]
  7. TYLENOL (CAPLET) [Concomitant]
  8. RETEMIC [Concomitant]

REACTIONS (7)
  - DIABETES MELLITUS [None]
  - DIPLOPIA [None]
  - EYELID PTOSIS [None]
  - HEMIPARESIS [None]
  - HEPATIC ENZYME INCREASED [None]
  - MULTIPLE SCLEROSIS RELAPSE [None]
  - URINARY TRACT INFECTION [None]
